FAERS Safety Report 7392702-2 (Version None)
Quarter: 2011Q2

REPORT INFORMATION
  Report Type: 
  Country: None (occurrence: None)
  Receive Date: 20110404
  Receipt Date: 20110328
  Transmission Date: 20111010
  Serious: Yes (Hospitalization)
  Sender: FDA-Public Use
  Company Number: US-PFIZER INC-2011068670

PATIENT
  Sex: Female

DRUGS (27)
  1. EMLA [Concomitant]
     Dosage: UNK
     Dates: start: 20100928
  2. ATENOLOL [Concomitant]
  3. ESOMEPRAZOLE [Concomitant]
     Dosage: UNK
     Dates: start: 20100923
  4. METOCLOPRAMIDE [Concomitant]
     Dosage: UNK
     Dates: start: 20101019
  5. VICOPROFEN [Concomitant]
     Dosage: UNK
     Dates: start: 20101228
  6. ACETAMINOPHEN [Concomitant]
  7. CYTOXAN [Suspect]
     Indication: BREAST CANCER
     Dosage: 600 MG/M2, UNK
     Dates: start: 20100928, end: 20101201
  8. AMOXICILLIN [Concomitant]
     Dosage: UNK
     Dates: start: 20101124
  9. ATIVAN [Concomitant]
     Dosage: UNK
     Dates: start: 20101019
  10. DIPHENHYDRAMINE [Concomitant]
     Dosage: UNK
     Dates: start: 20101221
  11. ONDANSETRON HYDROCHLORIDE [Concomitant]
     Dosage: UNK
     Dates: start: 20100831
  12. VERAPAMIL [Concomitant]
  13. LISINOPRIL [Concomitant]
  14. EMEND [Concomitant]
     Dosage: UNK
     Dates: start: 20100831
  15. PALONOSETRON [Concomitant]
     Dosage: UNK
     Dates: start: 20100928
  16. TRAMADOL [Concomitant]
     Indication: PAIN
     Dosage: 50 MG, EVERY 4 TO 6 HRS P.R.N
     Dates: start: 20101221
  17. ULTRAM [Concomitant]
  18. ADRIAMYCIN PFS [Suspect]
     Indication: BREAST CANCER
     Dosage: 60 MG/M2, UNK
     Dates: start: 20100928, end: 20101201
  19. IXEMPRA KIT [Suspect]
     Indication: BREAST CANCER
     Dosage: 72 MG, UNK
     Route: 042
     Dates: start: 20101221, end: 20110217
  20. METFORMIN HCL/PIOGLITAZONE HCL [Concomitant]
  21. CARAFATE [Concomitant]
     Dosage: UNK
     Dates: start: 20101228
  22. RANITIDINE [Concomitant]
     Dosage: UNK
     Dates: start: 20101221
  23. ACETAMINOPHEN W/ CODEINE [Concomitant]
     Indication: PAIN
     Dosage: 2 DF, EVERY 4 TO 6 HRS P.R.N
     Dates: start: 20100831
  24. ALLEGRA D 24 HOUR [Concomitant]
     Dosage: UNK
     Dates: start: 20101019
  25. AMBIEN [Concomitant]
     Dosage: UNK
     Dates: start: 20101228
  26. APREPITANT [Concomitant]
     Dosage: UNK
     Dates: start: 20100928
  27. PROMETHAZINE [Concomitant]
     Dosage: UNK
     Dates: start: 20101019

REACTIONS (5)
  - ANAEMIA [None]
  - FEBRILE NEUTROPENIA [None]
  - FANCONI SYNDROME [None]
  - DEHYDRATION [None]
  - HAEMOLYTIC ANAEMIA [None]
